FAERS Safety Report 8381490-9 (Version None)
Quarter: 2012Q2

REPORT INFORMATION
  Report Type: 
  Country: None (occurrence: None)
  Receive Date: 20120523
  Receipt Date: 20120515
  Transmission Date: 20120825
  Serious: Yes (Hospitalization)
  Sender: FDA-Public Use
  Company Number: US-BAXTER-2010BH012648

PATIENT
  Sex: Female
  Weight: 72.3 kg

DRUGS (19)
  1. NAMENDA [Concomitant]
     Route: 048
     Dates: start: 20080130
  2. LISINOPRIL [Concomitant]
     Indication: HYPERTENSION
     Route: 048
     Dates: start: 20090217
  3. ASPIRIN [Concomitant]
     Indication: ROUTINE HEALTH MAINTENANCE
     Route: 048
     Dates: start: 20080130
  4. GLUCERNA ^ABBOTT^ [Concomitant]
     Indication: ROUTINE HEALTH MAINTENANCE
     Route: 048
     Dates: start: 20090217
  5. GAMMAGARD LIQUID [Suspect]
     Route: 042
     Dates: start: 20090803, end: 20100413
  6. EXELON [Concomitant]
     Route: 062
     Dates: start: 20081111
  7. NEBIVOLOL [Concomitant]
     Indication: HYPERTENSION
     Route: 048
  8. HUMULIN R [Concomitant]
     Route: 030
     Dates: start: 20080625
  9. PEPCID [Concomitant]
     Route: 048
     Dates: start: 20070620
  10. ULTRAM [Concomitant]
     Route: 048
     Dates: start: 20080807
  11. COREG [Concomitant]
     Indication: HYPERTENSION
     Route: 048
     Dates: start: 20080130
  12. TYLENOL [Concomitant]
     Route: 048
     Dates: start: 20080807
  13. FLUTICASONE FUROATE [Concomitant]
     Indication: NASAL CONGESTION
     Route: 045
     Dates: start: 20080130
  14. VALSARTAN [Concomitant]
     Indication: HYPERTENSION
     Route: 048
     Dates: start: 20100407
  15. XYZAL [Concomitant]
     Indication: SEASONAL ALLERGY
     Route: 048
     Dates: start: 20080527
  16. MULTI-VITAMINS [Concomitant]
     Indication: ROUTINE HEALTH MAINTENANCE
     Route: 048
     Dates: start: 20080130
  17. EFFEXOR XR [Concomitant]
     Indication: DEPRESSION
     Route: 048
     Dates: start: 20081111
  18. GAMMAGARD LIQUID [Suspect]
     Route: 042
     Dates: start: 20100427, end: 20100427
  19. SIMVASTATIN [Concomitant]
     Route: 048
     Dates: start: 20080130

REACTIONS (2)
  - CARDIAC FAILURE CONGESTIVE [None]
  - ATRIAL FIBRILLATION [None]
